FAERS Safety Report 21075876 (Version 1)
Quarter: 2022Q3

REPORT INFORMATION
  Report Type: Spontaneous
  Country: CN (occurrence: CN)
  Receive Date: 20220713
  Receipt Date: 20220713
  Transmission Date: 20221027
  Serious: Yes (Other)
  Sender: FDA-Public Use
  Company Number: CN-PFIZER INC-PV202200014245

PATIENT
  Age: 72 Year
  Sex: Male

DRUGS (2)
  1. METHYLPREDNISOLONE [Suspect]
     Active Substance: METHYLPREDNISOLONE
     Indication: Systemic lupus erythematosus
     Dosage: 20 MG QM
     Route: 048
  2. BICYCLOL [Concomitant]
     Active Substance: BICYCLOL
     Indication: Liver disorder
     Dosage: 25 MG, 3X/DAY
     Route: 048

REACTIONS (2)
  - Tuberculosis [Unknown]
  - Pneumocystis jirovecii pneumonia [Unknown]
